FAERS Safety Report 6565574-3 (Version None)
Quarter: 2010Q1

REPORT INFORMATION
  Report Type: 
  Country: None (occurrence: None)
  Receive Date: 20100201
  Receipt Date: 20091103
  Transmission Date: 20100710
  Serious: Yes (Other)
  Sender: FDA-Public Use
  Company Number: CL-SANOFI-AVENTIS-F01200901048

PATIENT
  Age: 72 Year
  Sex: Female

DRUGS (7)
  1. OXALIPLATIN [Suspect]
     Indication: COLON CANCER
     Dosage: UNK
     Route: 041
  2. CAPECITABINE [Suspect]
     Route: 048
     Dates: start: 20090901, end: 20090905
  3. ONDANSETRON [Concomitant]
     Dosage: UNK
  4. PREDNISONE [Concomitant]
     Dosage: UNK
  5. AMITRIPTYLINE HCL [Concomitant]
     Dosage: UNK
  6. TIMAROL [Concomitant]
     Dosage: UNK
  7. ENALAPRIL MALEATE [Concomitant]
     Dosage: UNK

REACTIONS (6)
  - ANAEMIA [None]
  - BILE DUCT OBSTRUCTION [None]
  - BLOOD ALKALINE PHOSPHATASE INCREASED [None]
  - BLOOD BILIRUBIN INCREASED [None]
  - CHROMATURIA [None]
  - JAUNDICE [None]
